FAERS Safety Report 7278959-7 (Version None)
Quarter: 2011Q1

REPORT INFORMATION
  Report Type: 
  Country: None (occurrence: None)
  Receive Date: 20110207
  Receipt Date: 20110125
  Transmission Date: 20110831
  Serious: Yes (Death, Other)
  Sender: FDA-Public Use
  Company Number: US-TYCO HEALTHCARE/MALLINCKRODT-T201100147

PATIENT
  Age: 54 Year
  Sex: Female

DRUGS (2)
  1. CARBON MONOXIDE [Suspect]
     Dosage: UNK
  2. OXYCODONE HCL [Suspect]
     Dosage: UNK

REACTIONS (3)
  - CARDIO-RESPIRATORY ARREST [None]
  - THERMAL BURN [None]
  - CARBON MONOXIDE POISONING [None]
